FAERS Safety Report 5819510-5 (Version None)
Quarter: 2008Q3

REPORT INFORMATION
  Report Type: 
  Country: None (occurrence: None)
  Receive Date: 20080723
  Receipt Date: 20080718
  Transmission Date: 20090109
  Serious: Yes (Other)
  Sender: FDA-Public Use
  Company Number: FR-WYE-G01882008

PATIENT
  Age: 65 Year
  Sex: Female

DRUGS (3)
  1. GEMTUZUMAB OZOGAMICIN [Suspect]
     Indication: LEUKAEMIA RECURRENT
     Dosage: UNKNOWN
     Route: 042
     Dates: start: 20071201
  2. ARACYTINE [Suspect]
     Indication: LEUKAEMIA RECURRENT
     Dosage: UNKNOWN
     Route: 042
     Dates: start: 20071201
  3. DAUNORUBICIN [Suspect]
     Indication: LEUKAEMIA RECURRENT
     Dosage: UNKNOWN
     Route: 042
     Dates: start: 20071201

REACTIONS (6)
  - APLASIA [None]
  - COLITIS [None]
  - HEPATIC FIBROSIS [None]
  - HEPATIC STEATOSIS [None]
  - SEPSIS [None]
  - VENOOCCLUSIVE LIVER DISEASE [None]
